FAERS Safety Report 10136198 (Version 2)
Quarter: 2014Q2

REPORT INFORMATION
  Report Type: Spontaneous
  Country: FR (occurrence: FR)
  Receive Date: 20140429
  Receipt Date: 20140429
  Transmission Date: 20141212
  Serious: Yes (Other)
  Sender: FDA-Public Use
  Company Number: FR-MERCK-1404FRA006885

PATIENT
  Age: 5 Year
  Sex: Female
  Weight: 16 kg

DRUGS (3)
  1. AERIUS [Suspect]
     Indication: PRURITUS
     Dosage: UNK
     Route: 048
     Dates: start: 20140410, end: 20140411
  2. DOLIPRANE [Concomitant]
     Indication: PYREXIA
     Dosage: UNK
     Dates: start: 20140410
  3. AMOXICILLIN [Concomitant]
     Indication: SCARLET FEVER
     Dosage: 1 DF, BID
     Dates: start: 20140410

REACTIONS (3)
  - Movement disorder [Recovering/Resolving]
  - Nightmare [Recovering/Resolving]
  - Enuresis [Recovering/Resolving]
